FAERS Safety Report 5327958-0 (Version None)
Quarter: 2007Q2

REPORT INFORMATION
  Report Type: 
  Country: None (occurrence: None)
  Receive Date: 20070517
  Receipt Date: 20070515
  Transmission Date: 20071010
  Serious: Yes (Other)
  Sender: FDA-Public Use
  Company Number: DEWYE034115MAR07

PATIENT
  Age: 59 Year
  Sex: Male

DRUGS (1)
  1. VENLAFAXINE HCL [Suspect]
     Dosage: UNKNOWN DOSE REGIMEN

REACTIONS (1)
  - MACULOPATHY [None]
